FAERS Safety Report 25870782 (Version 1)
Quarter: 2025Q4

REPORT INFORMATION
  Report Type: Spontaneous
  Country: US (occurrence: None)
  Receive Date: 20251001
  Receipt Date: 20251001
  Transmission Date: 20260117
  Serious: Yes (Other)
  Sender: FDA-CTU
  Company Number: None

PATIENT
  Age: 75 Year
  Sex: Male
  Weight: 77.1 kg

DRUGS (1)
  1. IRINOTECAN [Suspect]
     Active Substance: IRINOTECAN
     Dosage: 300 MG ONCE INTRAVENOUS?
     Route: 042
     Dates: start: 20250917, end: 20250917

REACTIONS (2)
  - Pain [None]
  - Dizziness [None]

NARRATIVE: CASE EVENT DATE: 20250917
